FAERS Safety Report 24126131 (Version 1)
Quarter: 2024Q3

REPORT INFORMATION
  Report Type: Report from Study
  Country: CA (occurrence: CA)
  Receive Date: 20240723
  Receipt Date: 20240723
  Transmission Date: 20241017
  Serious: Yes (Death)
  Sender: ROCHE
  Company Number: CA-002147023-NVSC2019CA063740

PATIENT
  Age: 40 Year
  Sex: Male

DRUGS (7)
  1. XOLAIR [Suspect]
     Active Substance: OMALIZUMAB
     Indication: Chronic spontaneous urticaria
     Dosage: 150 MG, EVERY 4 WEEKS SOLUTION FOR INJECTION IN PRE-FILLED SYRINGE
     Route: 058
     Dates: start: 20191129
  2. XOLAIR [Suspect]
     Active Substance: OMALIZUMAB
     Dosage: 150 MG, EVERY 4 WEEKS
     Route: 058
     Dates: start: 20191202
  3. XOLAIR [Suspect]
     Active Substance: OMALIZUMAB
     Dosage: 300 MG, EVERY 4 WEEKS
     Route: 058
     Dates: start: 20191202
  4. XOLAIR [Suspect]
     Active Substance: OMALIZUMAB
     Dosage: 300 MG, Q2W
     Route: 058
     Dates: start: 20230626
  5. CLARITIN [Concomitant]
     Active Substance: LORATADINE
     Indication: Urticaria
     Dosage: 6 DF, QD
     Dates: start: 201908
  6. BILASTINE [Concomitant]
     Active Substance: BILASTINE
     Indication: Hypersensitivity
     Dosage: 1 DOSAGE FORM, OTHER
  7. CETIRIZINE HYDROCHLORIDE [Concomitant]
     Active Substance: CETIRIZINE HYDROCHLORIDE
     Indication: Urticaria
     Dosage: 1 DF, PRN
     Dates: start: 201911

REACTIONS (2)
  - Death [Fatal]
  - Urticaria [Not Recovered/Not Resolved]

NARRATIVE: CASE EVENT DATE: 20240109
